FAERS Safety Report 11641267 (Version 1)
Quarter: 2015Q4

REPORT INFORMATION
  Report Type: Spontaneous
  Country: KR (occurrence: KR)
  Receive Date: 20151019
  Receipt Date: 20151019
  Transmission Date: 20160304
  Serious: Yes (Death)
  Sender: FDA-Public Use
  Company Number: KR-IKARIA-201510000269

PATIENT
  Age: 17 Day
  Sex: Male
  Weight: 1.26 kg

DRUGS (33)
  1. PEDEA [Concomitant]
     Active Substance: IBUPROFEN
     Dosage: 8 MG, UNKNOWN
     Route: 042
     Dates: start: 20150817, end: 20150817
  2. LACIDOFIL [Concomitant]
     Dosage: 0.5 DF, UNKNOWN
     Route: 048
     Dates: start: 20150914, end: 20150918
  3. SILDENAFIL. [Concomitant]
     Active Substance: SILDENAFIL
     Dosage: 3.5 MG, Q6H
     Route: 048
     Dates: start: 20150825, end: 20150925
  4. HUMALOG [Concomitant]
     Active Substance: INSULIN LISPRO
     Dosage: 3.2 IU, UNKNOWN
     Route: 065
     Dates: start: 20150827, end: 20150827
  5. TRACLEER [Concomitant]
     Active Substance: BOSENTAN
     Dosage: 1.2 MG, Q12H
     Route: 048
     Dates: start: 20150916, end: 20150924
  6. VENTAVIS [Concomitant]
     Active Substance: ILOPROST
     Dosage: 2.5 ?G, UNKNOWN
     Route: 039
     Dates: start: 20150925, end: 20150925
  7. TROPIN [Concomitant]
     Dosage: UNK, UNKNOWN
     Route: 042
     Dates: start: 20150917, end: 20150925
  8. LASIX [Concomitant]
     Active Substance: FUROSEMIDE
     Dosage: 1.2 MG, UNKNOWN
     Route: 042
     Dates: start: 20150925, end: 20150925
  9. SODIUM BICARBONATE. [Concomitant]
     Active Substance: SODIUM BICARBONATE
     Dosage: UNK UNK, UNKNOWN
     Route: 042
     Dates: start: 20150821, end: 20150925
  10. TABAXIN [Concomitant]
     Dosage: 0.08 G, Q8H
     Route: 042
     Dates: start: 20150913, end: 20150925
  11. PRIMACOR [Concomitant]
     Active Substance: MILRINONE LACTATE
     Dosage: UNK, UNKNOWN
     Route: 042
     Dates: start: 20150924, end: 20150924
  12. VANCOMYCIN [Concomitant]
     Active Substance: VANCOMYCIN
     Dosage: 8.1 MG, Q12H
     Route: 042
     Dates: start: 20150824, end: 20150909
  13. DEXAMETHASONE. [Concomitant]
     Active Substance: DEXAMETHASONE
     Dosage: 0.1 MG, Q12H
     Route: 042
     Dates: start: 20150829, end: 20150902
  14. LASIX [Concomitant]
     Active Substance: FUROSEMIDE
     Dosage: 1.2 MG, UNKNOWN
     Route: 042
     Dates: start: 20150825, end: 20150825
  15. FENTANYL. [Concomitant]
     Active Substance: FENTANYL
     Dosage: UNK, UNKNOWN
     Route: 042
     Dates: start: 20150917, end: 20150925
  16. PEDEA [Concomitant]
     Active Substance: IBUPROFEN
     Dosage: 4 MG, UNKNOWN
     Route: 042
     Dates: start: 20150818, end: 20150819
  17. MEROPEN [Concomitant]
     Active Substance: MEROPENEM
     Dosage: 16.2 MG, Q12H
     Route: 042
     Dates: start: 20150824, end: 20150911
  18. OXYGEN. [Concomitant]
     Active Substance: OXYGEN
     Dosage: UNK
     Dates: start: 2015, end: 2015
  19. LACIDOFIL [Concomitant]
     Dosage: 0.5 DF, UNKNOWN
     Route: 048
     Dates: start: 20150923, end: 20150924
  20. DOBUTAMINE [Concomitant]
     Active Substance: DOBUTAMINE\DOBUTAMINE HYDROCHLORIDE
     Dosage: UNK, UNKNOWN
     Route: 042
     Dates: start: 20150925, end: 20150925
  21. DEXAMETHASONE. [Concomitant]
     Active Substance: DEXAMETHASONE
     Dosage: 0.08 MG, Q12H
     Route: 042
     Dates: start: 20150919, end: 20150920
  22. DEXAMETHASONE. [Concomitant]
     Active Substance: DEXAMETHASONE
     Dosage: 0.06 MG, Q12H
     Route: 042
     Dates: start: 20150921, end: 20150923
  23. DEXAMETHASONE. [Concomitant]
     Active Substance: DEXAMETHASONE
     Dosage: 0.04 MG, Q12H
     Route: 042
     Dates: start: 20150905, end: 20150907
  24. TABAXIN [Concomitant]
     Dosage: 0.08 G, Q8H
     Route: 042
     Dates: start: 20150822, end: 20150823
  25. INOMAX [Suspect]
     Active Substance: NITRIC OXIDE
     Indication: PERSISTENT FOETAL CIRCULATION
     Dosage: 20 PPM, CONTINUOUS
     Dates: start: 20150917, end: 201509
  26. GENTAMICIN. [Concomitant]
     Active Substance: GENTAMICIN
     Dosage: 4.0 MG, EVERY OTHER DAY
     Route: 042
     Dates: start: 20150815, end: 20150821
  27. HUMALOG [Concomitant]
     Active Substance: INSULIN LISPRO
     Dosage: 3.2 IU, UNKNOWN
     Route: 065
     Dates: start: 20150925, end: 20150925
  28. INOMAX [Suspect]
     Active Substance: NITRIC OXIDE
     Dosage: 25 PPM, CONTINUOUS
     Dates: start: 201509, end: 20150925
  29. LACIDOFIL [Concomitant]
     Dosage: 0.5 DF, UNKNOWN
     Route: 048
     Dates: start: 20150817, end: 20150824
  30. PENBREX [Concomitant]
     Dosage: 40 MG, Q12H
     Route: 042
     Dates: start: 20150815, end: 20150822
  31. NEOCAF [Concomitant]
     Dosage: 0.4 ML, UNKNOWN
     Route: 042
     Dates: start: 20150816, end: 20150917
  32. DEXAMETHASONE. [Concomitant]
     Active Substance: DEXAMETHASONE
     Dosage: 0.1 MG, Q12H
     Route: 042
     Dates: start: 20150917, end: 20150918
  33. DEXAMETHASONE. [Concomitant]
     Active Substance: DEXAMETHASONE
     Dosage: 0.08 MG, Q12H
     Route: 042
     Dates: start: 20150903, end: 20150904

REACTIONS (7)
  - Methaemoglobinaemia [Unknown]
  - Oxygen saturation decreased [Unknown]
  - Pulmonary hypoplasia [Fatal]
  - Off label use [Unknown]
  - Shock [Fatal]
  - Multi-organ failure [Fatal]
  - Drug ineffective for unapproved indication [Unknown]

NARRATIVE: CASE EVENT DATE: 201509
